FAERS Safety Report 6198297-3 (Version None)
Quarter: 2009Q2

REPORT INFORMATION
  Report Type: 
  Country: None (occurrence: None)
  Receive Date: 20090519
  Receipt Date: 20090508
  Transmission Date: 20091009
  Serious: Yes (Hospitalization)
  Sender: FDA-Public Use
  Company Number: GXKR2009AR05606

PATIENT

DRUGS (1)
  1. ACETYLSALICYLIC ACID SRT [Suspect]
     Indication: VIRAL INFECTION
     Dosage: VIRAL ILLNESS (VIRAL INFECTION)

REACTIONS (6)
  - ENCEPHALOPATHY [None]
  - HEPATIC STEATOSIS [None]
  - HEPATOMEGALY [None]
  - HYPERAMMONAEMIA [None]
  - HYPOGLYCAEMIA [None]
  - REYE'S SYNDROME [None]
